FAERS Safety Report 5957050-3 (Version None)
Quarter: 2008Q4

REPORT INFORMATION
  Report Type: 
  Country: None (occurrence: None)
  Receive Date: 20081118
  Receipt Date: 20081017
  Transmission Date: 20090506
  Serious: No
  Sender: FDA-Public Use
  Company Number: A0752393A

PATIENT
  Sex: Male

DRUGS (2)
  1. COREG CR [Suspect]
     Indication: HYPERTENSION
     Route: 048
  2. PERCOCET [Concomitant]

REACTIONS (1)
  - ARRHYTHMIA [None]
